FAERS Safety Report 10026464 (Version 3)
Quarter: 2014Q2

REPORT INFORMATION
  Report Type: Spontaneous
  Country: AR (occurrence: AR)
  Receive Date: 20140321
  Receipt Date: 20140417
  Transmission Date: 20141212
  Serious: Yes (Death, Hospitalization)
  Sender: FDA-Public Use
  Company Number: AR-PFIZER INC-2014078983

PATIENT
  Age: 66 Year
  Sex: Male
  Weight: 58 kg

DRUGS (4)
  1. XALKORI [Suspect]
     Indication: LUNG ADENOCARCINOMA
     Dosage: 200 MG, 2X/DAY
     Route: 048
     Dates: start: 20140113, end: 20140301
  2. LEVODOPA [Concomitant]
  3. CARBIDOPA [Concomitant]
  4. ACENOCUMAROL [Concomitant]

REACTIONS (4)
  - Lymphadenopathy [Fatal]
  - Biliary tract disorder [Fatal]
  - Pleural effusion [Unknown]
  - Pyrexia [Unknown]
